FAERS Safety Report 8344667-4 (Version None)
Quarter: 2012Q2

REPORT INFORMATION
  Report Type: 
  Country: None (occurrence: None)
  Receive Date: 20120508
  Receipt Date: 20120429
  Transmission Date: 20120825
  Serious: Yes (Other)
  Sender: FDA-Public Use
  Company Number: US-JNJFOC-20120501258

PATIENT
  Sex: Female

DRUGS (1)
  1. LEVAQUIN [Suspect]
     Indication: KIDNEY INFECTION
     Route: 065
     Dates: start: 20111117

REACTIONS (17)
  - HYPERTENSION [None]
  - INSOMNIA [None]
  - TINNITUS [None]
  - NIGHTMARE [None]
  - AMNESIA [None]
  - PANIC ATTACK [None]
  - BACK PAIN [None]
  - ABDOMINAL PAIN [None]
  - ARTHRALGIA [None]
  - HYPERSENSITIVITY [None]
  - OEDEMA PERIPHERAL [None]
  - HEADACHE [None]
  - EAR DISCOMFORT [None]
  - TENDON PAIN [None]
  - PARAESTHESIA [None]
  - FATIGUE [None]
  - ANXIETY [None]
